FAERS Safety Report 5226442-2 (Version None)
Quarter: 2007Q1

REPORT INFORMATION
  Report Type: 
  Country: None (occurrence: None)
  Receive Date: 20070201
  Receipt Date: 20070129
  Transmission Date: 20070707
  Serious: Yes (Death, Congenital Anomaly)
  Sender: FDA-Public Use
  Company Number: 2007UW01689

PATIENT
  Sex: Female

DRUGS (1)
  1. SYMBICORT [Suspect]
     Route: 064

REACTIONS (2)
  - DRUG EXPOSURE DURING PREGNANCY [None]
  - TRISOMY 21 [None]
